FAERS Safety Report 8492281-2 (Version None)
Quarter: 2012Q2

REPORT INFORMATION
  Report Type: 
  Country: None (occurrence: None)
  Receive Date: 20120625
  Receipt Date: 20120619
  Transmission Date: 20120825
  Serious: Yes (Life-Threatening, Hospitalization)
  Sender: FDA-Public Use
  Company Number: 2012032599

PATIENT
  Age: 17 Year
  Sex: Female

DRUGS (4)
  1. HIZENTRA [Suspect]
     Indication: SELECTIVE IGG SUBCLASS DEFICIENCY
     Dosage: 3X 10 ML; 25 ML/WEK; 15 ML/H, CONCENTRATION  OF SOLUTION 20% SUBCUTANEOUS
     Route: 058
  2. SULTANOL /00139501/ (SALBUTAMOL) [Concomitant]
  3. SERETIDE /01420901/ (SERETIDE / 01420901/) [Concomitant]
  4. KLACID /00984601/ (CLARITHROMYCIN) [Concomitant]

REACTIONS (9)
  - COUGH [None]
  - MALAISE [None]
  - TYPE IV HYPERSENSITIVITY REACTION [None]
  - INFUSION SITE ERYTHEMA [None]
  - PRURITUS [None]
  - DYSPNOEA [None]
  - INFUSION SITE URTICARIA [None]
  - DISORIENTATION [None]
  - FATIGUE [None]
